FAERS Safety Report 18078614 (Version 1)
Quarter: 2020Q3

REPORT INFORMATION
  Report Type: Spontaneous
  Country: US (occurrence: US)
  Receive Date: 20200728
  Receipt Date: 20200728
  Transmission Date: 20201103
  Serious: No
  Sender: FDA-Public Use
  Company Number: US-ELI_LILLY_AND_COMPANY-US202007011415

PATIENT
  Age: 51 Year
  Sex: Male

DRUGS (1)
  1. TALTZ [Suspect]
     Active Substance: IXEKIZUMAB
     Indication: PRODUCT USED FOR UNKNOWN INDICATION
     Dosage: 80 MG, UNKNOWN
     Route: 065
     Dates: start: 20200711

REACTIONS (5)
  - Abdominal pain [Unknown]
  - Pyrexia [Unknown]
  - Asthenia [Unknown]
  - Feeling abnormal [Unknown]
  - Lethargy [Unknown]

NARRATIVE: CASE EVENT DATE: 202007
